FAERS Safety Report 4911841-6 (Version None)
Quarter: 2006Q1

REPORT INFORMATION
  Report Type: 
  Country: None (occurrence: None)
  Receive Date: 20060213
  Receipt Date: 20060213
  Transmission Date: 20060701
  Serious: No
  Sender: FDA-Public Use
  Company Number: None

PATIENT
  Sex: Male

DRUGS (1)
  1. OXYCODONE 5 MG TABLET (ETHEX) [Suspect]
     Indication: PAIN
     Dosage: 5 MG 1 Q 12 H PM PO
     Route: 048
     Dates: start: 20051223, end: 20060110

REACTIONS (1)
  - DIZZINESS [None]
